FAERS Safety Report 13867603 (Version 1)
Quarter: 2017Q3

REPORT INFORMATION
  Report Type: Report from Study
  Country: US (occurrence: US)
  Receive Date: 20170814
  Receipt Date: 20170814
  Transmission Date: 20171127
  Serious: No
  Sender: FDA-Public Use
  Company Number: US-ACADIA PHARMACEUTICALS INC.-ACA-2017-004853

PATIENT
  Age: 74 Year
  Sex: Male
  Weight: 88.89 kg

DRUGS (7)
  1. NUPLAZID [Suspect]
     Active Substance: PIMAVANSERIN TARTRATE
     Indication: DEMENTIA
  2. NUPLAZID [Suspect]
     Active Substance: PIMAVANSERIN TARTRATE
     Indication: PARKINSON^S DISEASE
     Dosage: 17 MG, QD
     Route: 048
     Dates: start: 20170718, end: 201707
  3. RYTARY [Concomitant]
     Active Substance: CARBIDOPA\LEVODOPA
     Indication: PRODUCT USED FOR UNKNOWN INDICATION
  4. GABAPENTIN. [Concomitant]
     Active Substance: GABAPENTIN
     Indication: PAIN
     Dosage: 400 MG, UNK
  5. SEROQUEL [Concomitant]
     Active Substance: QUETIAPINE FUMARATE
     Indication: PRODUCT USED FOR UNKNOWN INDICATION
  6. CLONAZEPAM. [Concomitant]
     Active Substance: CLONAZEPAM
     Indication: SLEEP DISORDER
  7. NUPLAZID [Suspect]
     Active Substance: PIMAVANSERIN TARTRATE
     Indication: HALLUCINATION
     Dosage: 34 MG, QD
     Dates: start: 201707, end: 20170723

REACTIONS (9)
  - Malaise [Not Recovered/Not Resolved]
  - Fear [Not Recovered/Not Resolved]
  - Hallucination [Not Recovered/Not Resolved]
  - Off label use [Unknown]
  - Decreased appetite [Not Recovered/Not Resolved]
  - Drooling [Not Recovered/Not Resolved]
  - Underdose [Unknown]
  - Dysphagia [Not Recovered/Not Resolved]
  - Confusional state [Not Recovered/Not Resolved]

NARRATIVE: CASE EVENT DATE: 20170721
